FAERS Safety Report 5395551-X (Version None)
Quarter: 2007Q3

REPORT INFORMATION
  Report Type: 
  Country: None (occurrence: None)
  Receive Date: 20070718
  Receipt Date: 20060613
  Transmission Date: 20080115
  Serious: Yes (Other)
  Sender: FDA-Public Use
  Company Number: 2006075487

PATIENT
  Age: 42 Year
  Sex: Female
  Weight: 127.0072 kg

DRUGS (1)
  1. CELEBREX [Suspect]
     Indication: ARTHRITIS
     Dosage: 100 OR 200 MG/DAY
     Dates: start: 19990706, end: 20041214

REACTIONS (8)
  - AMNESIA [None]
  - ANXIETY [None]
  - BLOOD PRESSURE ABNORMAL [None]
  - CEREBROVASCULAR ACCIDENT [None]
  - COGNITIVE DISORDER [None]
  - HEADACHE [None]
  - HYPOAESTHESIA FACIAL [None]
  - VISUAL DISTURBANCE [None]
